FAERS Safety Report 9918306 (Version 2)
Quarter: 2014Q1

REPORT INFORMATION
  Report Type: Report from Study
  Country: US (occurrence: US)
  Receive Date: 20140224
  Receipt Date: 20140324
  Transmission Date: 20141002
  Serious: Yes (Other)
  Sender: FDA-Public Use
  Company Number: US-ROCHE-1333532

PATIENT
  Sex: Male

DRUGS (13)
  1. LUCENTIS [Suspect]
     Indication: DIABETIC EYE DISEASE
     Dosage: OS
     Route: 050
     Dates: start: 20101230, end: 20110411
  2. LUCENTIS [Suspect]
     Indication: DIABETIC RETINOPATHY
  3. LUCENTIS [Suspect]
     Indication: DIABETIC RETINAL OEDEMA
  4. AVASTIN [Suspect]
     Indication: PRODUCT USED FOR UNKNOWN INDICATION
     Route: 065
  5. METFORMIN HYDROCHLORIDE [Concomitant]
     Route: 065
  6. RAMIPRIL [Concomitant]
  7. LUTEIN [Concomitant]
  8. LOVASTATIN [Concomitant]
  9. ALCAINE [Concomitant]
  10. LIDOCAINE [Concomitant]
  11. GENTAMICIN [Concomitant]
  12. NOVOLOG [Concomitant]
  13. VERAPAMIL [Concomitant]

REACTIONS (7)
  - Diabetic retinal oedema [Unknown]
  - Vitreous floaters [Unknown]
  - Glare [Unknown]
  - Metamorphopsia [Unknown]
  - Vision blurred [Unknown]
  - Neuropathy peripheral [Unknown]
  - Blood pressure increased [Unknown]
